FAERS Safety Report 24080883 (Version 1)
Quarter: 2024Q3

REPORT INFORMATION
  Report Type: Spontaneous
  Country: CN (occurrence: CN)
  Receive Date: 20240711
  Receipt Date: 20240711
  Transmission Date: 20241016
  Serious: Yes (Other)
  Sender: SANOFI AVENTIS
  Company Number: CN-SA-SAC20240709001086

PATIENT
  Age: 30 Year
  Sex: Male
  Weight: 77 kg

DRUGS (2)
  1. OXALIPLATIN [Suspect]
     Active Substance: OXALIPLATIN
     Indication: Neoplasm malignant
     Dosage: 150 MG, 1X
     Route: 041
     Dates: start: 20240423, end: 20240423
  2. DEXTROSE [Concomitant]
     Active Substance: DEXTROSE\DEXTROSE MONOHYDRATE
     Indication: Neoplasm malignant
     Dosage: 500 ML, 1X
     Route: 041
     Dates: start: 20240423, end: 20240423

REACTIONS (4)
  - Tachypnoea [Recovering/Resolving]
  - Flushing [Recovering/Resolving]
  - Rash erythematous [Recovering/Resolving]
  - Chest discomfort [Recovering/Resolving]

NARRATIVE: CASE EVENT DATE: 20240423
